FAERS Safety Report 9044199 (Version 1)
Quarter: 2013Q1

REPORT INFORMATION
  Report Type: Report from Study
  Country: US (occurrence: US)
  Receive Date: 20130130
  Receipt Date: 20130130
  Transmission Date: 20140127
  Serious: No
  Sender: FDA-Public Use
  Company Number: US-ABBOTT-12P-163-0953846-00

PATIENT
  Sex: Female
  Weight: 68.55 kg

DRUGS (2)
  1. HUMIRA 40 MG/0.8 ML PEN [Suspect]
     Indication: CROHN^S DISEASE
     Dates: start: 201106
  2. REGULAR CARTILAGE INJECTIONS [Concomitant]
     Indication: ARTHRITIS

REACTIONS (4)
  - Lichen planus [Recovering/Resolving]
  - Skin exfoliation [Recovering/Resolving]
  - Skin exfoliation [Recovering/Resolving]
  - Arthritis [Not Recovered/Not Resolved]
